FAERS Safety Report 10774543 (Version 1)
Quarter: 2015Q1

REPORT INFORMATION
  Report Type: Spontaneous
  Country: GB (occurrence: GB)
  Receive Date: 20150209
  Receipt Date: 20150209
  Transmission Date: 20150721
  Serious: Yes (Other)
  Sender: FDA-Public Use
  Company Number: GB-THROMBOGENICS NV-SPO-2015-1690

PATIENT
  Sex: Female

DRUGS (1)
  1. JETREA [Suspect]
     Active Substance: OCRIPLASMIN
     Indication: MACULAR HOLE
     Dosage: 0.125 MG, ONE TIME DOSE
     Route: 031
     Dates: start: 20130719, end: 20130719

REACTIONS (5)
  - Disease progression [Unknown]
  - Off label use [Unknown]
  - Retinal disorder [Unknown]
  - Visual acuity reduced [Unknown]
  - Drug ineffective for unapproved indication [Unknown]
